FAERS Safety Report 11780391 (Version 1)
Quarter: 2015Q4

REPORT INFORMATION
  Report Type: Spontaneous
  Country: US (occurrence: US)
  Receive Date: 20151126
  Receipt Date: 20151126
  Transmission Date: 20160305
  Serious: No
  Sender: FDA-Public Use
  Company Number: US-JNJFOC-20151009115

PATIENT
  Age: 92 Year
  Sex: Female
  Weight: 55.34 kg

DRUGS (5)
  1. HEART MEDICATION (UNKNOWN) [Concomitant]
     Indication: CARDIAC DISORDER
     Route: 065
  2. MOTRIN IB [Suspect]
     Active Substance: IBUPROFEN
     Indication: ARTHRALGIA
     Dosage: 2 CAPLETS, 2X PER DAY (TOOK 2 CAPLETS EACH MORNING, AND 2 EACH NIGHT, FOR 1-2 WEEKS)
     Route: 048
     Dates: end: 20151012
  3. HIGH BLOOD PRESSURE MEDICATION NOS [Concomitant]
     Active Substance: UNSPECIFIED INGREDIENT
     Indication: HYPERTENSION
     Route: 065
  4. CENTRUM NOS [Concomitant]
     Indication: NUTRITIONAL SUPPLEMENTATION
     Route: 065
  5. MOTRIN IB [Suspect]
     Active Substance: IBUPROFEN
     Indication: ARTHRALGIA
     Dosage: 2 CAPLETS, 2X PER DAY (TOOK 2 CAPLETS EACH MORNING, AND 2 EACH NIGHT, FOR 1-2 WEEKS)
     Route: 048
     Dates: end: 20151012

REACTIONS (2)
  - Drug ineffective [Unknown]
  - Drug administration error [Unknown]
